FAERS Safety Report 4360439-X (Version None)
Quarter: 2004Q2

REPORT INFORMATION
  Report Type: 
  Country: None (occurrence: None)
  Receive Date: 20040514
  Receipt Date: 20040505
  Transmission Date: 20050107
  Serious: Yes (Other)
  Sender: FDA-Public Use
  Company Number: 2004030510

PATIENT
  Age: 84 Year
  Sex: Female
  Weight: 55.7924 kg

DRUGS (13)
  1. LIPITOR [Suspect]
     Indication: ILL-DEFINED DISORDER
     Dosage: UNK (UNKNOWN); ORAL (SEE IMAGE)
     Route: 048
     Dates: start: 20030101
  2. QUININE (QUININE) [Suspect]
     Indication: MUSCLE CRAMP
     Dosage: UNK (UNKNOWN), UNKNOWN (SEE IMAGE)
     Route: 065
     Dates: end: 20040101
  3. ALL OTHER THERAPEUTIC PRODUCTS (ALL OTHER THERAPEUTIC PRODUCTS) [Suspect]
     Indication: ILL-DEFINED DISORDER
     Dosage: UNK (UNKNOWN), UNKNOWN (SEE IMAGE)
     Route: 065
  4. RAMIPRIL [Concomitant]
  5. POTASSIUM [Concomitant]
  6. FUROSEMIDE [Concomitant]
  7. LEVOTHYROXINE SODIUM [Concomitant]
  8. ISOSORBIDE MONONITRATE [Concomitant]
  9. AMOXICILLIN [Concomitant]
  10. ASPIRIN [Concomitant]
  11. ATENOLOL [Concomitant]
  12. LANSOPRAZOLE [Concomitant]
  13. MULTIVITAMIN [Concomitant]

REACTIONS (10)
  - BODY HEIGHT DECREASED [None]
  - CATHETERISATION CARDIAC [None]
  - CEREBROVASCULAR ACCIDENT [None]
  - HAEMORRHAGE [None]
  - HAIR TEXTURE ABNORMAL [None]
  - NIGHT CRAMPS [None]
  - RASH PRURITIC [None]
  - RHINORRHOEA [None]
  - SCRATCH [None]
  - SLEEP DISORDER DUE TO GENERAL MEDICAL CONDITION, INSOMNIA TYPE [None]
